FAERS Safety Report 9056096 (Version 2)
Quarter: 2013Q2

REPORT INFORMATION
  Report Type: Report from Study
  Country: FR (occurrence: FR)
  Receive Date: 20130205
  Receipt Date: 20130628
  Transmission Date: 20140414
  Serious: Yes (Other)
  Sender: FDA-Public Use
  Company Number: FR-CELGENEUS-056-21880-13014322

PATIENT
  Age: 66 Year
  Sex: Male

DRUGS (18)
  1. REVLIMID [Suspect]
     Indication: PLASMA CELL MYELOMA
     Route: 048
     Dates: start: 20110524
  2. REVLIMID [Suspect]
     Route: 048
     Dates: end: 20121212
  3. BORTEZOMIB [Suspect]
     Indication: PLASMA CELL MYELOMA
     Route: 065
     Dates: start: 20110524
  4. BORTEZOMIB [Suspect]
     Route: 048
     Dates: end: 20111229
  5. DEXAMETHASONE [Suspect]
     Indication: PLASMA CELL MYELOMA
     Route: 065
     Dates: start: 20110524
  6. DEXAMETHASONE [Suspect]
     Route: 048
     Dates: end: 20111230
  7. LERCAPRESS [Concomitant]
     Indication: HYPERTENSION
     Route: 065
     Dates: start: 200906
  8. FLUDEX [Concomitant]
     Indication: HYPERTENSION
     Route: 065
     Dates: start: 200906
  9. TARDYFERON [Concomitant]
     Indication: IRON DEFICIENCY
     Route: 065
     Dates: start: 201003
  10. KARDEGIC [Concomitant]
     Indication: THROMBOSIS
     Route: 065
     Dates: start: 201012
  11. ZYLORIC [Concomitant]
     Indication: HYPERURICAEMIA
     Route: 065
     Dates: start: 201012
  12. LEVOTHYROX [Concomitant]
     Indication: THYROID NEOPLASM
     Route: 065
     Dates: start: 20120327
  13. ASPIRINE [Concomitant]
     Indication: THROMBOSIS
     Route: 065
     Dates: start: 20110614
  14. NOVORAPID [Concomitant]
     Indication: DIABETES MELLITUS
     Route: 065
     Dates: start: 20120125
  15. CARDENSIEL [Concomitant]
     Indication: CARDIAC FAILURE
     Route: 065
     Dates: start: 20111108
  16. EUPANTOL [Concomitant]
     Indication: CARDIAC FAILURE
     Route: 065
     Dates: start: 20111108
  17. CRESTOR [Concomitant]
     Indication: BLOOD CHOLESTEROL
     Route: 065
     Dates: start: 20120125
  18. LANTUS [Concomitant]
     Indication: DIABETES MELLITUS
     Route: 065
     Dates: start: 20120125

REACTIONS (1)
  - Prostate cancer [Recovered/Resolved]
